FAERS Safety Report 18886111 (Version 1)
Quarter: 2021Q1

REPORT INFORMATION
  Report Type: Spontaneous
  Country: DE (occurrence: DE)
  Receive Date: 20210212
  Receipt Date: 20210212
  Transmission Date: 20210420
  Serious: Yes (Other)
  Sender: FDA-Public Use
  Company Number: DE-JNJFOC-20210217579

PATIENT
  Age: 62 Year
  Sex: Female
  Weight: 74.5 kg

DRUGS (1)
  1. REGAINE WOMAN 2% PR?008381 [Suspect]
     Active Substance: MINOXIDIL
     Indication: ALOPECIA
     Dosage: 1ML TWICE DAILY
     Route: 061
     Dates: start: 20130101, end: 20160101

REACTIONS (1)
  - Neoplasm malignant [Recovered/Resolved]

NARRATIVE: CASE EVENT DATE: 20160101
